FAERS Safety Report 25600388 (Version 1)
Quarter: 2025Q3

REPORT INFORMATION
  Report Type: Report from Study
  Country: CA (occurrence: None)
  Receive Date: 20250724
  Receipt Date: 20250724
  Transmission Date: 20251021
  Serious: Yes (Hospitalization, Other)
  Sender: ORION
  Company Number: CA-PFIZER INC-202300046108

PATIENT
  Age: 75 Year
  Sex: Female

DRUGS (7)
  1. METHOTREXATE [Suspect]
     Active Substance: METHOTREXATE
     Indication: Rheumatoid arthritis
  2. RITUXIMAB [Suspect]
     Active Substance: RITUXIMAB
     Indication: Rheumatoid arthritis
  3. RITUXIMAB [Suspect]
     Active Substance: RITUXIMAB
     Indication: Rheumatoid arthritis
  4. RITUXIMAB [Suspect]
     Active Substance: RITUXIMAB
  5. ACETAMINOPHEN [Concomitant]
     Active Substance: ACETAMINOPHEN
  6. DIPHENHYDRAMINE [Concomitant]
     Active Substance: DIPHENHYDRAMINE
  7. METHYLPREDNISOLONE [Concomitant]
     Active Substance: METHYLPREDNISOLONE

REACTIONS (8)
  - Angina pectoris [Unknown]
  - COVID-19 [Unknown]
  - Chest pain [Unknown]
  - Illness [Unknown]
  - Interstitial lung disease [Unknown]
  - Pneumonia [Unknown]
  - Rheumatoid arthritis [Unknown]
  - Intentional dose omission [Unknown]
